FAERS Safety Report 25467705 (Version 1)
Quarter: 2025Q2

REPORT INFORMATION
  Report Type: Spontaneous
  Country: US (occurrence: US)
  Receive Date: 20250623
  Receipt Date: 20250623
  Transmission Date: 20250717
  Serious: No
  Sender: RANBAXY
  Company Number: US-MIMS-SUN-2025-USA-53728

PATIENT
  Sex: Female

DRUGS (1)
  1. GUAIFENESIN\PSEUDOEPHEDRINE HYDROCHLORIDE [Suspect]
     Active Substance: GUAIFENESIN\PSEUDOEPHEDRINE HYDROCHLORIDE
     Indication: Sinus congestion
     Dosage: UNK, QD
     Route: 065

REACTIONS (2)
  - Underdose [Unknown]
  - Therapy cessation [Unknown]
